FAERS Safety Report 9527960 (Version 1)
Quarter: 2013Q3

REPORT INFORMATION
  Report Type: Spontaneous
  Country: FR (occurrence: FR)
  Receive Date: 20130917
  Receipt Date: 20130917
  Transmission Date: 20140515
  Serious: Yes (Hospitalization)
  Sender: FDA-Public Use
  Company Number: FR-ASTRAZENECA-2013SE68845

PATIENT
  Age: 293 Month
  Sex: Female
  Weight: 47.9 kg

DRUGS (2)
  1. INEXIUM [Suspect]
     Indication: ABDOMINAL PAIN UPPER
     Route: 048
     Dates: start: 20130704, end: 20130813
  2. ACICLOVIR [Suspect]
     Route: 065
     Dates: start: 20130808

REACTIONS (18)
  - Pyrexia [Recovering/Resolving]
  - Eosinophilia [Not Recovered/Not Resolved]
  - Bicytopenia [Not Recovered/Not Resolved]
  - Purpura [Recovering/Resolving]
  - Mucous membrane disorder [Unknown]
  - Chills [Unknown]
  - Asthenia [Unknown]
  - Herpes simplex DNA test positive [Unknown]
  - Rash pustular [Unknown]
  - Lymphopenia [Unknown]
  - Eye disorder [Not Recovered/Not Resolved]
  - Dennie-Morgan fold [Unknown]
  - Drug reaction with eosinophilia and systemic symptoms [Not Recovered/Not Resolved]
  - Face oedema [Not Recovered/Not Resolved]
  - Cholestasis [Not Recovered/Not Resolved]
  - Rash maculo-papular [Recovering/Resolving]
  - Rash pruritic [Recovering/Resolving]
  - Hepatocellular injury [Recovering/Resolving]
